FAERS Safety Report 11866109 (Version 2)
Quarter: 2017Q1

REPORT INFORMATION
  Report Type: Report from Study
  Country: US (occurrence: US)
  Receive Date: 20151223
  Receipt Date: 20170201
  Transmission Date: 20170428
  Serious: Yes (Hospitalization, Other)
  Sender: FDA-Public Use
  Company Number: US-EXELIXIS-CABO-15005548

PATIENT
  Sex: Female

DRUGS (12)
  1. PREDNISONE. [Concomitant]
     Active Substance: PREDNISONE
  2. CALCIUM [Concomitant]
     Active Substance: CALCIUM
  3. SYNTHROID [Concomitant]
     Active Substance: LEVOTHYROXINE SODIUM
  4. COMETRIQ [Suspect]
     Active Substance: CABOZANTINIB S-MALATE
     Dosage: 80 MG, QD
     Route: 048
     Dates: start: 2015, end: 201512
  5. ASPIRIN. [Concomitant]
     Active Substance: ASPIRIN
  6. COMETRIQ [Suspect]
     Active Substance: CABOZANTINIB S-MALATE
     Dosage: 60 MG, QD
     Route: 048
     Dates: start: 2016, end: 2016
  7. COMETRIQ [Suspect]
     Active Substance: CABOZANTINIB S-MALATE
     Dosage: 80 MG, QD
     Route: 048
     Dates: start: 201601, end: 201605
  8. COMETRIQ [Suspect]
     Active Substance: CABOZANTINIB S-MALATE
     Dosage: 60 MG, QD
     Route: 048
     Dates: start: 201606, end: 2016
  9. MAGNESIUM [Concomitant]
     Active Substance: MAGNESIUM
  10. COMETRIQ [Suspect]
     Active Substance: CABOZANTINIB S-MALATE
     Indication: THYROID CANCER
     Dosage: 140 MG, QD
     Route: 048
     Dates: start: 20150426, end: 20150616
  11. COMETRIQ [Suspect]
     Active Substance: CABOZANTINIB S-MALATE
     Dosage: 100 MG, QD
     Route: 048
     Dates: start: 20150617, end: 2015
  12. COMETRIQ [Suspect]
     Active Substance: CABOZANTINIB S-MALATE
     Dosage: 80 MG, QD
     Route: 048
     Dates: start: 20150804, end: 20151015

REACTIONS (8)
  - Gastrointestinal infection [Unknown]
  - Diarrhoea [Recovering/Resolving]
  - Dysphonia [Not Recovered/Not Resolved]
  - Malaise [Unknown]
  - Lung infection [Unknown]
  - Blister [Recovered/Resolved]
  - Dehydration [Unknown]
  - Adrenal insufficiency [Unknown]
